FAERS Safety Report 16556222 (Version 3)
Quarter: 2019Q3

REPORT INFORMATION
  Report Type: Spontaneous
  Country: CA (occurrence: CA)
  Receive Date: 20190710
  Receipt Date: 20190820
  Transmission Date: 20191004
  Serious: Yes (Other)
  Sender: FDA-Public Use
  Company Number: CA-JUBILANT PHARMA LTD-2019CA000663

PATIENT
  Age: 75 Year
  Sex: Male

DRUGS (1)
  1. TETRAKIS (2-METHOXYISOBUTYL ISONITRILE) COPPER (I) TETRAFLUOROBORATE [Suspect]
     Active Substance: TETRAKIS(2-METHOXYISOBUTYLISOCYANIDE)COPPER(I) TETRAFLUOROBORATE
     Indication: PRODUCT USED FOR UNKNOWN INDICATION
     Dosage: 710 MBQ, SINGLE DOSE
     Route: 042
     Dates: start: 20190123, end: 20190123

REACTIONS (6)
  - Nasal congestion [Recovered/Resolved]
  - Anxiety [Recovered/Resolved]
  - Rash [Recovered/Resolved]
  - Tremor [Recovered/Resolved]
  - Dyspnoea [Recovered/Resolved]
  - Chest discomfort [Recovered/Resolved]

NARRATIVE: CASE EVENT DATE: 20190123
